FAERS Safety Report 24429581 (Version 1)
Quarter: 2024Q4

REPORT INFORMATION
  Report Type: Spontaneous
  Country: CN (occurrence: CN)
  Receive Date: 20241012
  Receipt Date: 20241012
  Transmission Date: 20250115
  Serious: Yes (Life-Threatening, Other)
  Sender: JIANGSU HANSOH PHARMACEUTICAL
  Company Number: CN-Jiangsu Hansoh Pharmaceutical Co., Ltd-2162914

PATIENT
  Age: 72 Year
  Sex: Male
  Weight: 60 kg

DRUGS (2)
  1. GEMCITABINE HYDROCHLORIDE [Suspect]
     Active Substance: GEMCITABINE HYDROCHLORIDE
     Indication: Bladder cancer
     Dates: start: 20240904, end: 20240904
  2. CISPLATIN [Suspect]
     Active Substance: CISPLATIN
     Dates: start: 20240904, end: 20240904

REACTIONS (3)
  - Myelosuppression [Recovering/Resolving]
  - Off label use [Unknown]
  - Rash erythematous [Unknown]

NARRATIVE: CASE EVENT DATE: 20240920
